FAERS Safety Report 9830778 (Version 1)
Quarter: 2014Q1

REPORT INFORMATION
  Report Type: Spontaneous
  Country: US (occurrence: US)
  Receive Date: 20140120
  Receipt Date: 20140120
  Transmission Date: 20141002
  Serious: Yes (Hospitalization, Other)
  Sender: FDA-Public Use
  Company Number: US-ELI_LILLY_AND_COMPANY-US201401002809

PATIENT
  Age: 30 Year
  Sex: Female

DRUGS (8)
  1. HUMALOG LISPRO [Suspect]
     Indication: TYPE 1 DIABETES MELLITUS
     Dosage: 6 U, TID
     Route: 065
     Dates: start: 201201
  2. LANTUS [Concomitant]
  3. FAMOTIDINE [Concomitant]
  4. SIMVASTATIN [Concomitant]
  5. AMLODIPINE [Concomitant]
  6. LABETALOL [Concomitant]
  7. LOSARTAN [Concomitant]
  8. RENVELA [Concomitant]

REACTIONS (3)
  - Diabetic ketoacidosis [Recovered/Resolved]
  - Dehydration [Unknown]
  - Drug dose omission [Unknown]
